FAERS Safety Report 5444954-3 (Version None)
Quarter: 2007Q3

REPORT INFORMATION
  Report Type: 
  Country: None (occurrence: None)
  Receive Date: 20070906
  Receipt Date: 20070829
  Transmission Date: 20080115
  Serious: Yes (Other)
  Sender: FDA-Public Use
  Company Number: CA-JNJFOC-20070700959

PATIENT
  Weight: 106 kg

DRUGS (10)
  1. REMICADE [Suspect]
     Indication: ANKYLOSING SPONDYLITIS
     Route: 042
  2. NEXIUM [Concomitant]
  3. GABAPENTIN [Concomitant]
     Route: 048
  4. ELTROXIN [Concomitant]
     Route: 048
  5. PROPRANOLOL [Concomitant]
     Route: 048
  6. LOSEC I.V. [Concomitant]
     Route: 048
  7. MAXALT [Concomitant]
     Dosage: WAFERS
     Route: 048
  8. CELEBREX [Concomitant]
     Route: 048
  9. PROGESTERONE [Concomitant]
  10. ESTROGEN [Concomitant]
     Route: 048

REACTIONS (2)
  - MUSCLE SPASMS [None]
  - MUSCULAR WEAKNESS [None]
